FAERS Safety Report 23646637 (Version 3)
Quarter: 2024Q3

REPORT INFORMATION
  Report Type: Report from Study
  Country: US (occurrence: US)
  Receive Date: 20240319
  Receipt Date: 20240731
  Transmission Date: 20241016
  Serious: No
  Sender: ABBVIE
  Company Number: US-ABBVIE-5680592

PATIENT
  Sex: Female

DRUGS (4)
  1. SKYRIZI [Suspect]
     Active Substance: RISANKIZUMAB-RZAA
     Indication: Psoriasis
     Dosage: WEEK 0?STRENGTH 150MG/ML
     Route: 058
     Dates: start: 20231122, end: 20231122
  2. SKYRIZI [Suspect]
     Active Substance: RISANKIZUMAB-RZAA
     Dosage: WEEK 4?STRENGTH 150MG/ML
     Route: 058
     Dates: start: 20231220, end: 20231220
  3. SKYRIZI [Suspect]
     Active Substance: RISANKIZUMAB-RZAA
     Dosage: WEEK 12?FIRST ADMIN DATE AND LAST ADMIN DATE WAS 2024?STRENGTH 150MG/ML
     Route: 058
  4. SKYRIZI [Suspect]
     Active Substance: RISANKIZUMAB-RZAA
     Dosage: FIRST ADMIN DATE WAS 2024?STRENGTH 150MG/ML
     Route: 058

REACTIONS (9)
  - Tooth dislocation [Not Recovered/Not Resolved]
  - Psoriasis [Recovering/Resolving]
  - Gingival pain [Not Recovered/Not Resolved]
  - Burning sensation [Unknown]
  - Tooth infection [Recovering/Resolving]
  - Dental restoration failure [Not Recovered/Not Resolved]
  - Eye pruritus [Unknown]
  - Rash papular [Recovered/Resolved]
  - Neuralgia [Unknown]

NARRATIVE: CASE EVENT DATE: 20240101
